FAERS Safety Report 9683658 (Version 3)
Quarter: 2014Q1

REPORT INFORMATION
  Report Type: Spontaneous
  Country: BR (occurrence: BR)
  Receive Date: 20131112
  Receipt Date: 20140317
  Transmission Date: 20141002
  Serious: Yes (Other)
  Sender: FDA-Public Use
  Company Number: BR-JNJFOC-20130717518

PATIENT
  Age: 16 Year
  Sex: Female
  Weight: 52 kg

DRUGS (10)
  1. REMICADE [Suspect]
     Indication: COLITIS
     Route: 042
     Dates: start: 20130528
  2. REMICADE [Suspect]
     Indication: COLITIS
     Route: 042
     Dates: start: 20140106
  3. REMICADE [Suspect]
     Indication: COLITIS
     Route: 042
     Dates: start: 20130906
  4. REMICADE [Suspect]
     Indication: COLITIS
     Route: 042
     Dates: start: 20130611
  5. REMICADE [Suspect]
     Indication: CROHN^S DISEASE
     Route: 042
     Dates: start: 20130611
  6. REMICADE [Suspect]
     Indication: CROHN^S DISEASE
     Route: 042
     Dates: start: 20130906
  7. REMICADE [Suspect]
     Indication: CROHN^S DISEASE
     Route: 042
     Dates: start: 20140106
  8. REMICADE [Suspect]
     Indication: CROHN^S DISEASE
     Route: 042
     Dates: start: 20130528
  9. POLARAMINE (DEXCHLORPHENIRAMINE MALEATE) [Concomitant]
     Indication: PREMEDICATION
     Route: 065
  10. TYLENOL [Concomitant]
     Indication: PREMEDICATION
     Route: 065

REACTIONS (9)
  - Anaphylactic reaction [Unknown]
  - Haemorrhage [Unknown]
  - Rectal discharge [Unknown]
  - Proctalgia [Unknown]
  - Pain [Unknown]
  - Hypersensitivity [Recovered/Resolved]
  - Headache [Recovered/Resolved]
  - Malaise [Not Recovered/Not Resolved]
  - Weight decreased [Unknown]
